FAERS Safety Report 17646299 (Version 3)
Quarter: 2022Q4

REPORT INFORMATION
  Report Type: Spontaneous
  Country: US (occurrence: US)
  Receive Date: 20200408
  Receipt Date: 20221117
  Transmission Date: 20230112
  Serious: Yes (Other)
  Sender: FDA-Public Use
  Company Number: US-SA-2020SA088066

PATIENT
  Age: 64 Year
  Sex: Male

DRUGS (6)
  1. DUPIXENT [Suspect]
     Active Substance: DUPILUMAB
     Indication: Dermatitis atopic
     Dosage: 600 MG, 1X
     Route: 058
  2. DUPIXENT [Suspect]
     Active Substance: DUPILUMAB
     Indication: Cutaneous T-cell lymphoma
     Dosage: 300 MG, QOW
     Route: 058
  3. AZATHIOPRINE [Concomitant]
     Active Substance: AZATHIOPRINE
     Indication: Dermatitis atopic
     Route: 048
  4. DIPHENHYDRAMINE [Concomitant]
     Active Substance: DIPHENHYDRAMINE
     Route: 048
  5. GABAPENTIN [Concomitant]
     Active Substance: GABAPENTIN
     Route: 048
  6. PREDNISONE [Concomitant]
     Active Substance: PREDNISONE
     Indication: Dermatitis atopic
     Dosage: UNK
     Route: 048

REACTIONS (10)
  - Cutaneous T-cell lymphoma stage III [Recovering/Resolving]
  - Unintentional use for unapproved indication [Recovering/Resolving]
  - Disease progression [Recovering/Resolving]
  - Dermatitis exfoliative generalised [Recovering/Resolving]
  - Hyperkeratosis [Recovering/Resolving]
  - Skin exfoliation [Recovering/Resolving]
  - Staphylococcal impetigo [Recovering/Resolving]
  - Skin burning sensation [Recovering/Resolving]
  - Sleep disorder [Recovering/Resolving]
  - Quality of life decreased [Recovering/Resolving]
